FAERS Safety Report 13981703 (Version 1)
Quarter: 2017Q3

REPORT INFORMATION
  Report Type: Spontaneous
  Country: US (occurrence: US)
  Receive Date: 20170918
  Receipt Date: 20170918
  Transmission Date: 20171128
  Serious: No
  Sender: FDA-Public Use
  Company Number: US-BION-006203

PATIENT
  Sex: Female

DRUGS (1)
  1. CETIRIZINE HCL SOFTGEL 10 MG [Suspect]
     Active Substance: CETIRIZINE HYDROCHLORIDE
     Indication: PRODUCT USED FOR UNKNOWN INDICATION
     Dosage: STRENGTH: 10 MG

REACTIONS (1)
  - Drug ineffective [Not Recovered/Not Resolved]
